FAERS Safety Report 18542473 (Version 1)
Quarter: 2020Q4

REPORT INFORMATION
  Report Type: Report from Study
  Country: US (occurrence: US)
  Receive Date: 20201125
  Receipt Date: 20201125
  Transmission Date: 20210114
  Serious: Yes (Hospitalization)
  Sender: FDA-Public Use
  Company Number: US-TAIHO ONCOLOGY  INC-EU-2020-04084

PATIENT
  Age: 73 Year
  Sex: Male
  Weight: 80.1 kg

DRUGS (13)
  1. LORATADINE. [Concomitant]
     Active Substance: LORATADINE
  2. CHLOROPHYLL [Concomitant]
  3. OXYCODONE HYDROCHLORIDE. [Concomitant]
     Active Substance: OXYCODONE HYDROCHLORIDE
  4. IRINOTECAN HCL [Concomitant]
     Active Substance: IRINOTECAN HYDROCHLORIDE
  5. OXALIPLATIN. [Concomitant]
     Active Substance: OXALIPLATIN
  6. FLUOROURACIL. [Concomitant]
     Active Substance: FLUOROURACIL
  7. VITAMIN D3 [Concomitant]
     Active Substance: CHOLECALCIFEROL
  8. AVASTIN [Concomitant]
     Active Substance: BEVACIZUMAB
  9. DIAZEPAM. [Concomitant]
     Active Substance: DIAZEPAM
  10. LONSURF [Suspect]
     Active Substance: TIPIRACIL HYDROCHLORIDE\TRIFLURIDINE
     Indication: COLON CANCER
     Dosage: CYCLE-2
     Route: 048
     Dates: start: 20201030, end: 20201114
  11. METOCLOPRAMIDE HCL [Concomitant]
     Active Substance: METOCLOPRAMIDE HYDROCHLORIDE
  12. LEUCOVORIN CALCIUM. [Concomitant]
     Active Substance: LEUCOVORIN CALCIUM
  13. ZIRABEV [Concomitant]
     Active Substance: BEVACIZUMAB-BVZR

REACTIONS (1)
  - Large intestinal haemorrhage [Recovering/Resolving]

NARRATIVE: CASE EVENT DATE: 20201114
